FAERS Safety Report 12449204 (Version 1)
Quarter: 2016Q2

REPORT INFORMATION
  Report Type: Spontaneous
  Country: US (occurrence: US)
  Receive Date: 20160608
  Receipt Date: 20160608
  Transmission Date: 20160815
  Serious: Yes (Hospitalization)
  Sender: FDA-Public Use
  Company Number: US-ACTELION-A-US2016-137224

PATIENT
  Age: 73 Year
  Sex: Male

DRUGS (12)
  1. SODIUM CHLORIDE. [Concomitant]
     Active Substance: SODIUM CHLORIDE
  2. LIDOCAINE W/PRILOCAINE [Concomitant]
  3. DEXTROSE. [Concomitant]
     Active Substance: DEXTROSE
  4. METOLAZONE. [Concomitant]
     Active Substance: METOLAZONE
  5. PROMETHAZINE [Concomitant]
     Active Substance: PROMETHAZINE\PROMETHAZINE HYDROCHLORIDE
  6. RIOCIGUAT [Concomitant]
     Active Substance: RIOCIGUAT
  7. ONDANSETRON [Concomitant]
     Active Substance: ONDANSETRON
  8. OXALIPLATIN. [Concomitant]
     Active Substance: OXALIPLATIN
  9. SPIRONOLACTONE. [Concomitant]
     Active Substance: SPIRONOLACTONE
  10. OPSUMIT [Suspect]
     Active Substance: MACITENTAN
     Indication: PULMONARY ARTERIAL HYPERTENSION
     Dosage: 10 MG, QD
     Route: 048
     Dates: start: 20151119
  11. MAGNESIUM OXIDE. [Concomitant]
     Active Substance: MAGNESIUM OXIDE
  12. DEXAMETHASONE. [Concomitant]
     Active Substance: DEXAMETHASONE

REACTIONS (1)
  - Ankle fracture [Recovered/Resolved]

NARRATIVE: CASE EVENT DATE: 20160514
